FAERS Safety Report 5361088-7 (Version None)
Quarter: 2007Q2

REPORT INFORMATION
  Report Type: 
  Country: None (occurrence: None)
  Receive Date: 20070612
  Receipt Date: 20070607
  Transmission Date: 20071010
  Serious: Yes (Other)
  Sender: FDA-Public Use
  Company Number: 014643

PATIENT
  Sex: Female

DRUGS (7)
  1. MEDROXYPROGESTERONE ACETATE(MEDROXYPROGESTERONE ACETATE(MEDROXYPROGEST [Suspect]
     Dosage: ORAL
     Route: 048
  2. ESTRADIOL [Suspect]
     Dosage: ORAL
     Route: 048
  3. CYCRIN [Suspect]
     Dosage: ORAL
     Route: 048
  4. ESTRACE [Suspect]
     Dosage: ORAL
     Route: 048
  5. ESTRATEST [Suspect]
     Dosage: ORAL
     Route: 048
  6. PREMARIN [Suspect]
     Dosage: ORAL
     Route: 048
  7. PREMPRO [Suspect]
     Dosage: ORAL
     Route: 048

REACTIONS (1)
  - BREAST CANCER FEMALE [None]
